FAERS Safety Report 5307028-8 (Version None)
Quarter: 2007Q2

REPORT INFORMATION
  Report Type: 
  Country: None (occurrence: None)
  Receive Date: 20070425
  Receipt Date: 20070417
  Transmission Date: 20071010
  Serious: Yes (Hospitalization)
  Sender: FDA-Public Use
  Company Number: US-ROCHE-484950

PATIENT
  Age: 82 Year
  Sex: Female
  Weight: 58.1 kg

DRUGS (1)
  1. BONIVA [Suspect]
     Indication: OSTEOPOROSIS
     Route: 042
     Dates: start: 20070222, end: 20070222

REACTIONS (10)
  - COLD SWEAT [None]
  - FEELING ABNORMAL [None]
  - FEELING HOT [None]
  - HYPERSENSITIVITY [None]
  - HYPOTENSION [None]
  - ILL-DEFINED DISORDER [None]
  - LOSS OF CONSCIOUSNESS [None]
  - MALAISE [None]
  - MYDRIASIS [None]
  - SYNCOPE [None]
